FAERS Safety Report 17338305 (Version 1)
Quarter: 2020Q1

REPORT INFORMATION
  Report Type: Spontaneous
  Country: AF (occurrence: AF)
  Receive Date: 20200128
  Receipt Date: 20200128
  Transmission Date: 20200409
  Serious: Yes (Disabling, Other)
  Sender: FDA-Public Use
  Company Number: None

PATIENT
  Age: 43 Year
  Sex: Male
  Weight: 94.5 kg

DRUGS (10)
  1. NORCO [Concomitant]
     Active Substance: ACETAMINOPHEN\HYDROCODONE BITARTRATE
  2. HYDROCODONE ACETOMIN [Suspect]
     Active Substance: ACETAMINOPHEN\HYDROCODONE BITARTRATE
     Indication: ARACHNOIDITIS
     Dosage: ?          QUANTITY:1 TABLET(S);?
     Route: 048
  3. HALCION [Concomitant]
     Active Substance: TRIAZOLAM
  4. PREDNISONE. [Concomitant]
     Active Substance: PREDNISONE
  5. WELLBUTRIN [Concomitant]
     Active Substance: BUPROPION HYDROCHLORIDE
  6. CBD OIL [Concomitant]
     Active Substance: CANNABIDIOL\HERBALS
  7. HYDROCODONE ACETOMIN [Suspect]
     Active Substance: ACETAMINOPHEN\HYDROCODONE BITARTRATE
     Indication: HEADACHE
     Dosage: ?          QUANTITY:1 TABLET(S);?
     Route: 048
  8. HYDROCODONE ACETOMIN [Suspect]
     Active Substance: ACETAMINOPHEN\HYDROCODONE BITARTRATE
     Indication: RADICULOPATHY
     Dosage: ?          QUANTITY:1 TABLET(S);?
     Route: 048
  9. HYDROCODONE ACETOMIN [Suspect]
     Active Substance: ACETAMINOPHEN\HYDROCODONE BITARTRATE
     Indication: STENOSIS
     Dosage: ?          QUANTITY:1 TABLET(S);?
     Route: 048
  10. VALIUM [Concomitant]
     Active Substance: DIAZEPAM

REACTIONS (3)
  - Product substitution issue [None]
  - Inadequate analgesia [None]
  - Drug ineffective [None]

NARRATIVE: CASE EVENT DATE: 20200123
